FAERS Safety Report 7458352-4 (Version None)
Quarter: 2011Q2

REPORT INFORMATION
  Report Type: 
  Country: None (occurrence: None)
  Receive Date: 20110502
  Receipt Date: 20110502
  Transmission Date: 20111010
  Serious: Yes (Other)
  Sender: FDA-Public Use
  Company Number: None

PATIENT

DRUGS (1)
  1. CLEOCIN [Suspect]
     Indication: TOOTH INFECTION
     Dates: start: 20091202

REACTIONS (16)
  - ASTHENIA [None]
  - HYPOAESTHESIA FACIAL [None]
  - FEELING ABNORMAL [None]
  - HYPOPHAGIA [None]
  - MENTAL DISORDER [None]
  - DEHYDRATION [None]
  - INSOMNIA [None]
  - HYPOAESTHESIA ORAL [None]
  - ANXIETY [None]
  - MENSTRUAL DISORDER [None]
  - WEIGHT DECREASED [None]
  - ANAEMIA [None]
  - MUSCLE SPASMS [None]
  - PARANOIA [None]
  - CONTUSION [None]
  - TREMOR [None]
